FAERS Safety Report 7422754-2 (Version None)
Quarter: 2011Q2

REPORT INFORMATION
  Report Type: 
  Country: None (occurrence: None)
  Receive Date: 20110411
  Receipt Date: 20110405
  Transmission Date: 20111010
  Serious: Yes (Death, Other)
  Sender: FDA-Public Use
  Company Number: 2010SP019251

PATIENT
  Age: 67 Year
  Sex: Female
  Weight: 101 kg

DRUGS (10)
  1. MEDROL [Suspect]
     Indication: CENTRAL NERVOUS SYSTEM LYMPHOMA
     Dosage: 40 MG; QD; PO
     Route: 048
     Dates: start: 20100313
  2. CORTANCYL [Concomitant]
  3. TEMODAL [Suspect]
     Indication: CENTRAL NERVOUS SYSTEM LYMPHOMA
     Dosage: 300 MG; QD; PO
     Route: 048
     Dates: start: 20100114, end: 20100312
  4. TEMODAL [Suspect]
     Indication: CENTRAL NERVOUS SYSTEM LYMPHOMA
     Dosage: 300 MG; QD; PO
     Route: 048
     Dates: end: 20100508
  5. METHOTREXATE [Suspect]
     Indication: CENTRAL NERVOUS SYSTEM LYMPHOMA
     Dosage: 7 GM; QD; IV, 7.59 GM; QD; IV
     Route: 042
     Dates: start: 20100114, end: 20100308
  6. METHOTREXATE [Suspect]
     Indication: CENTRAL NERVOUS SYSTEM LYMPHOMA
     Dosage: 7 GM; QD; IV, 7.59 GM; QD; IV
     Route: 042
     Dates: start: 20100403, end: 20100504
  7. KARDEGIC [Concomitant]
  8. MORPHINE [Concomitant]
  9. KEPPRA [Concomitant]
  10. LEVOTHYROX [Concomitant]

REACTIONS (11)
  - ABDOMINAL PAIN [None]
  - PNEUMOCYSTIS JIROVECI PNEUMONIA [None]
  - HAEMOPHILUS TEST POSITIVE [None]
  - MORAXELLA TEST POSITIVE [None]
  - BACK PAIN [None]
  - ENTEROCOCCUS TEST POSITIVE [None]
  - PSEUDOMONAL SEPSIS [None]
  - PSEUDOMONAS TEST POSITIVE [None]
  - HYPOTENSION [None]
  - TACHYCARDIA [None]
  - OEDEMA PERIPHERAL [None]
